FAERS Safety Report 9730810 (Version 2)
Quarter: 2015Q4

REPORT INFORMATION
  Report Type: Report from Study
  Country: US (occurrence: US)
  Receive Date: 20131205
  Receipt Date: 20151214
  Transmission Date: 20160305
  Serious: Yes (Hospitalization)
  Sender: FDA-Public Use
  Company Number: US-ROCHE-1309443

PATIENT
  Sex: Female
  Weight: 79 kg

DRUGS (30)
  1. AVASTIN [Suspect]
     Active Substance: BEVACIZUMAB
     Indication: BONE CANCER
  2. XELODA [Suspect]
     Active Substance: CAPECITABINE
     Indication: BREAST CANCER
  3. LEVAQUIN [Concomitant]
     Active Substance: LEVOFLOXACIN
     Route: 048
  4. MOBIC [Concomitant]
     Active Substance: MELOXICAM
     Route: 048
  5. ROXICODONE [Concomitant]
     Active Substance: OXYCODONE HYDROCHLORIDE
     Route: 048
  6. AVASTIN [Suspect]
     Active Substance: BEVACIZUMAB
     Indication: BREAST CANCER
     Route: 065
     Dates: start: 20130207
  7. CARBOPLATIN. [Concomitant]
     Active Substance: CARBOPLATIN
  8. PRILOSEC [Concomitant]
     Active Substance: OMEPRAZOLE MAGNESIUM
     Route: 048
  9. ADVIL [Concomitant]
     Active Substance: IBUPROFEN
     Dosage: 100 MG  PRN
     Route: 048
  10. VICODIN [Concomitant]
     Active Substance: ACETAMINOPHEN\HYDROCODONE BITARTRATE
     Dosage: 5-500MG
     Route: 048
  11. XGEVA [Concomitant]
     Active Substance: DENOSUMAB
  12. XELODA [Suspect]
     Active Substance: CAPECITABINE
     Indication: BONE CANCER
     Dosage: TAKEN WITH MEALS
     Route: 048
  13. FENTANYL. [Concomitant]
     Active Substance: FENTANYL
     Indication: PAIN
     Route: 062
  14. COLACE [Concomitant]
     Active Substance: DOCUSATE SODIUM
     Dosage: PRN
     Route: 048
  15. ATIVAN [Concomitant]
     Active Substance: LORAZEPAM
     Indication: ANXIETY
     Dosage: PRN
     Route: 048
  16. MORPHINE [Concomitant]
     Active Substance: MORPHINE
     Indication: PAIN
     Route: 048
  17. ZOFRAN ODT [Concomitant]
     Active Substance: ONDANSETRON HYDROCHLORIDE
     Indication: NAUSEA
     Dosage: PRN
     Route: 048
  18. COMPAZINE [Concomitant]
     Active Substance: PROCHLORPERAZINE MALEATE
     Dosage: PRN
     Route: 048
  19. TAXOL [Concomitant]
     Active Substance: PACLITAXEL
  20. GEMCITABINE [Concomitant]
     Active Substance: GEMCITABINE\GEMCITABINE HYDROCHLORIDE
  21. KLOR-CON [Concomitant]
     Active Substance: POTASSIUM CHLORIDE
     Route: 048
  22. TYLENOL [Concomitant]
     Active Substance: ACETAMINOPHEN
     Dosage: 325 MG PRN
     Route: 048
  23. CIPRO [Concomitant]
     Active Substance: CIPROFLOXACIN HYDROCHLORIDE
     Route: 048
  24. XANAX [Concomitant]
     Active Substance: ALPRAZOLAM
     Dosage: NIGHTLY PRN
     Route: 048
  25. DECADRON [Concomitant]
     Active Substance: DEXAMETHASONE
     Dosage: TAKEN WITH MEALS
     Route: 048
  26. GABAPENTIN. [Concomitant]
     Active Substance: GABAPENTIN
     Route: 065
  27. PERCOCET [Concomitant]
     Active Substance: ACETAMINOPHEN\OXYCODONE HYDROCHLORIDE
     Dosage: PRN
     Route: 065
  28. MOTRIN [Concomitant]
     Active Substance: IBUPROFEN
     Route: 048
  29. FEMARA [Concomitant]
     Active Substance: LETROZOLE
     Route: 048
  30. IXEMPRA [Concomitant]
     Active Substance: IXABEPILONE
     Indication: BREAST CANCER

REACTIONS (12)
  - Drug intolerance [Unknown]
  - Oedema peripheral [Unknown]
  - Anxiety [Unknown]
  - Dyspnoea [Recovering/Resolving]
  - Back pain [Unknown]
  - Paraesthesia [Unknown]
  - Musculoskeletal pain [Recovering/Resolving]
  - Pneumonia [Unknown]
  - Tachycardia [Recovering/Resolving]
  - Weight decreased [Unknown]
  - Disease progression [Unknown]
  - Migraine [Unknown]
